FAERS Safety Report 24381977 (Version 1)
Quarter: 2024Q4

REPORT INFORMATION
  Report Type: Spontaneous
  Country: US (occurrence: US)
  Receive Date: 20241001
  Receipt Date: 20241001
  Transmission Date: 20250114
  Serious: No
  Sender: ELI LILLY AND CO
  Company Number: US-ELI_LILLY_AND_COMPANY-US202409018027

PATIENT
  Sex: Male

DRUGS (3)
  1. CYMBALTA [Suspect]
     Active Substance: DULOXETINE HYDROCHLORIDE
     Indication: Abdominal pain
     Dosage: 1 DOSAGE FORM, DAILY
     Route: 048
     Dates: start: 202404
  2. CYMBALTA [Suspect]
     Active Substance: DULOXETINE HYDROCHLORIDE
     Indication: Anxiety
     Dosage: 30 MG, UNKNOWN (POSSIBLE INCREASE OF DOSE)
     Route: 065
  3. CYMBALTA [Suspect]
     Active Substance: DULOXETINE HYDROCHLORIDE
     Indication: Depression

REACTIONS (7)
  - Frequent bowel movements [Recovering/Resolving]
  - Depression [Unknown]
  - Pain [Recovered/Resolved]
  - Pain [Not Recovered/Not Resolved]
  - Hot flush [Unknown]
  - Abdominal pain [Recovering/Resolving]
  - Anxiety [Unknown]
